FAERS Safety Report 26040945 (Version 1)
Quarter: 2025Q4

REPORT INFORMATION
  Report Type: Spontaneous
  Country: US (occurrence: US)
  Receive Date: 20251113
  Receipt Date: 20251113
  Transmission Date: 20260118
  Serious: No
  Sender: ALEXION PHARMACEUTICALS
  Company Number: US-ASTRAZENECA-202410USA028910US

PATIENT
  Age: 77 Year
  Sex: Male

DRUGS (2)
  1. FARXIGA [Suspect]
     Active Substance: DAPAGLIFLOZIN PROPANEDIOL
     Indication: Neoplasm malignant
     Dosage: UNK
  2. ORGOVYX [Suspect]
     Active Substance: RELUGOLIX
     Indication: Prostate cancer
     Dosage: 360 MILLIGRAM, QD

REACTIONS (6)
  - Pollakiuria [Unknown]
  - Malaise [Unknown]
  - Mood swings [Unknown]
  - Hypersensitivity [Unknown]
  - Diarrhoea [Unknown]
  - Blood glucose increased [Unknown]
